FAERS Safety Report 4957799-5 (Version None)
Quarter: 2006Q1

REPORT INFORMATION
  Report Type: 
  Country: None (occurrence: None)
  Receive Date: 20060324
  Receipt Date: 20060315
  Transmission Date: 20060701
  Serious: Yes (Other)
  Sender: FDA-Public Use
  Company Number: GB-2006-005671

PATIENT
  Age: 37 Year
  Sex: Female
  Weight: 85.9 kg

DRUGS (1)
  1. MIRENA [Suspect]
     Indication: MENORRHAGIA
     Dosage: 20 UG/DAY, CONT, INTRA-UTERINE
     Route: 015
     Dates: start: 20041025, end: 20060306

REACTIONS (2)
  - BLIGHTED OVUM [None]
  - PREGNANCY WITH IMPLANT CONTRACEPTIVE [None]
